FAERS Safety Report 21074013 (Version 1)
Quarter: 2022Q3

REPORT INFORMATION
  Report Type: Spontaneous
  Country: SK (occurrence: SK)
  Receive Date: 20220713
  Receipt Date: 20220713
  Transmission Date: 20221027
  Serious: Yes (Other)
  Sender: FDA-Public Use
  Company Number: SK-BAXTER-2022BAX011835

PATIENT
  Sex: Male

DRUGS (9)
  1. RITUXIMAB [Suspect]
     Active Substance: RITUXIMAB
     Indication: Mantle cell lymphoma
     Dosage: 2ND LINE OF CHEMOTHERAPY, 8X BR (BENDAMUSTIN+RITUXIMAB)
     Route: 065
     Dates: start: 202004, end: 202011
  2. RITUXIMAB [Suspect]
     Active Substance: RITUXIMAB
     Dosage: 1ST LINE OF CHEMOTHERAPY, (6X CHOP) + (8X RITUXIMAB) IN REDUCED DOSES DUE TO COMORBIDITY AND BICYTOP
     Route: 065
     Dates: start: 201802, end: 201808
  3. IBRUTINIB [Suspect]
     Active Substance: IBRUTINIB
     Indication: Mantle cell lymphoma
     Dosage: 3RD LINE OF CHEMOTHERAPY, 2 TAB
     Route: 065
     Dates: start: 202107
  4. IBRUTINIB [Suspect]
     Active Substance: IBRUTINIB
     Dosage: 2 DF (2 TAB), UNKNOWN FREQ. 3RD LINE OF CHEMOTHERAPY
     Route: 065
  5. VINCRISTINE [Suspect]
     Active Substance: VINCRISTINE
     Indication: Mantle cell lymphoma
     Dosage: 1ST LINE OF CHEMOTHERAPY, (6X CHOP) + (8X RITUXIMAB) IN REDUCED DOSES DUE TO COMORBIDITY AND BICYTOP
     Route: 065
     Dates: start: 201802, end: 201808
  6. BENDAMUSTINE HYDROCHLORIDE [Suspect]
     Active Substance: BENDAMUSTINE HYDROCHLORIDE
     Indication: Mantle cell lymphoma
     Dosage: 8X BR (BENDAMUSTIN+RITUXIMAB)
     Route: 065
     Dates: start: 202004, end: 202011
  7. PREDNISONE [Suspect]
     Active Substance: PREDNISONE
     Indication: Mantle cell lymphoma
     Dosage: 1ST LINE OF CHEMOTHERAPY, (6X CHOP) + (8X RITUXIMAB) IN REDUCED DOSES DUE TO COMORBIDITY AND BICYTOP
     Route: 065
     Dates: start: 201802, end: 201808
  8. CYCLOPHOSPHAMIDE [Suspect]
     Active Substance: CYCLOPHOSPHAMIDE
     Indication: Mantle cell lymphoma
     Dosage: 1ST LINE OF CHEMOTHERAPY, (6X CHOP) + (8X RITUXIMAB) IN REDUCED DOSES DUE TO COMORBIDITY AND BICYTOP
     Route: 065
     Dates: start: 201802, end: 201808
  9. DOXORUBICIN [Suspect]
     Active Substance: DOXORUBICIN
     Indication: Mantle cell lymphoma
     Dosage: 1ST LINE OF CHEMOTHERAPY, (6X CHOP) + (8X RITUXIMAB) IN REDUCED DOSES DUE TO COMORBIDITY AND BICYTOP
     Route: 065
     Dates: start: 201802, end: 201808

REACTIONS (2)
  - Disease recurrence [Unknown]
  - Therapy partial responder [Unknown]

NARRATIVE: CASE EVENT DATE: 20210401
